FAERS Safety Report 24422522 (Version 1)
Quarter: 2024Q4

REPORT INFORMATION
  Report Type: Spontaneous
  Country: US (occurrence: None)
  Receive Date: 20241009
  Receipt Date: 20241009
  Transmission Date: 20250115
  Serious: Yes (Hospitalization)
  Sender: Public
  Company Number: None

PATIENT
  Age: 67 Year
  Sex: Male

DRUGS (2)
  1. IBUPROFEN [Suspect]
     Active Substance: IBUPROFEN
     Indication: Pain
  2. MELOXICAM [Suspect]
     Active Substance: MELOXICAM
     Indication: Pain

REACTIONS (4)
  - Gastrointestinal haemorrhage [None]
  - Anaemia [None]
  - Gastritis erosive [None]
  - Loss of consciousness [None]

NARRATIVE: CASE EVENT DATE: 20240623
